FAERS Safety Report 21933413 (Version 1)
Quarter: 2023Q1

REPORT INFORMATION
  Report Type: Spontaneous
  Country: CN (occurrence: CN)
  Receive Date: 20230131
  Receipt Date: 20230131
  Transmission Date: 20230417
  Serious: Yes (Other)
  Sender: FDA-Public Use
  Company Number: CN-SUN PHARMACEUTICAL INDUSTRIES LTD-2023R1-376080

PATIENT
  Age: 39 Year
  Sex: Male

DRUGS (24)
  1. CEFTRIAXONE [Suspect]
     Active Substance: CEFTRIAXONE
     Indication: Pyrexia
     Dosage: 2 GRAM, DAILY
     Route: 042
  2. CEFTRIAXONE [Suspect]
     Active Substance: CEFTRIAXONE
     Indication: Coma
  3. CEFTRIAXONE [Suspect]
     Active Substance: CEFTRIAXONE
     Indication: Peptic ulcer
  4. CEFTRIAXONE [Suspect]
     Active Substance: CEFTRIAXONE
     Indication: Gastrointestinal haemorrhage
  5. ESOMEPRAZOLE [Suspect]
     Active Substance: ESOMEPRAZOLE
     Indication: Pyrexia
     Dosage: UNK
     Route: 048
  6. ESOMEPRAZOLE [Suspect]
     Active Substance: ESOMEPRAZOLE
     Indication: Coma
  7. ESOMEPRAZOLE [Suspect]
     Active Substance: ESOMEPRAZOLE
     Indication: Peptic ulcer
  8. ESOMEPRAZOLE [Suspect]
     Active Substance: ESOMEPRAZOLE
     Indication: Gastrointestinal haemorrhage
  9. PREDNISONE [Suspect]
     Active Substance: PREDNISONE
     Indication: Pyrexia
     Dosage: 10 MILLIGRAM, DAILY
     Route: 065
  10. PREDNISONE [Suspect]
     Active Substance: PREDNISONE
     Indication: Coma
  11. PREDNISONE [Suspect]
     Active Substance: PREDNISONE
     Indication: Peptic ulcer
  12. PREDNISONE [Suspect]
     Active Substance: PREDNISONE
     Indication: Gastrointestinal haemorrhage
  13. ACYCLOVIR [Suspect]
     Active Substance: ACYCLOVIR
     Indication: Pyrexia
     Dosage: 1.5 GRAM, DAILY
     Route: 042
  14. ACYCLOVIR [Suspect]
     Active Substance: ACYCLOVIR
     Indication: Coma
  15. ACYCLOVIR [Suspect]
     Active Substance: ACYCLOVIR
     Indication: Peptic ulcer
  16. ACYCLOVIR [Suspect]
     Active Substance: ACYCLOVIR
     Indication: Gastrointestinal haemorrhage
  17. ALBUMIN HUMAN [Suspect]
     Active Substance: ALBUMIN HUMAN
     Indication: Pyrexia
     Dosage: UNK
     Route: 042
  18. ALBUMIN HUMAN [Suspect]
     Active Substance: ALBUMIN HUMAN
     Indication: Coma
  19. ALBUMIN HUMAN [Suspect]
     Active Substance: ALBUMIN HUMAN
     Indication: Peptic ulcer
  20. ALBUMIN HUMAN [Suspect]
     Active Substance: ALBUMIN HUMAN
     Indication: Gastrointestinal haemorrhage
  21. MANNITOL [Suspect]
     Active Substance: MANNITOL
     Indication: Pyrexia
     Dosage: UNK
     Route: 042
  22. MANNITOL [Suspect]
     Active Substance: MANNITOL
     Indication: Coma
  23. MANNITOL [Suspect]
     Active Substance: MANNITOL
     Indication: Peptic ulcer
  24. MANNITOL [Suspect]
     Active Substance: MANNITOL
     Indication: Gastrointestinal haemorrhage

REACTIONS (2)
  - Drug ineffective [Unknown]
  - Disease progression [Unknown]
